FAERS Safety Report 8848256 (Version 2)
Quarter: 2015Q3

REPORT INFORMATION
  Report Type: Report from Study
  Country: US (occurrence: US)
  Receive Date: 20121018
  Receipt Date: 20150820
  Transmission Date: 20151125
  Serious: Yes (Hospitalization, Other)
  Sender: FDA-Public Use
  Company Number: US-ROCHE-1139841

PATIENT
  Age: 13 Year
  Sex: Male
  Weight: 59 kg

DRUGS (6)
  1. PROTROPIN [Suspect]
     Active Substance: SOMATREM
     Indication: GROWTH HORMONE DEFICIENCY
     Route: 058
     Dates: start: 19930827
  2. PROTROPIN [Suspect]
     Active Substance: SOMATREM
     Route: 058
     Dates: start: 19940811
  3. PROTROPIN [Suspect]
     Active Substance: SOMATREM
     Route: 058
     Dates: start: 19950925
  4. PROTROPIN [Suspect]
     Active Substance: SOMATREM
     Indication: HYPOPITUITARISM
     Route: 058
     Dates: start: 19970305
  5. PROTROPIN [Suspect]
     Active Substance: SOMATREM
     Route: 058
     Dates: start: 19940518
  6. PROTROPIN [Suspect]
     Active Substance: SOMATREM
     Indication: DWARFISM
     Dosage: 10 MG VIAL, DILUTED IN 1 ML
     Route: 058
     Dates: start: 19930827

REACTIONS (9)
  - Meningitis [Recovered/Resolved]
  - Brain oedema [Unknown]
  - Pyrexia [Unknown]
  - Headache [Unknown]
  - Seizure [Unknown]
  - Pneumothorax [Unknown]
  - Malaise [Unknown]
  - Drug dose omission [Unknown]
  - Depression [Unknown]

NARRATIVE: CASE EVENT DATE: 199708
